FAERS Safety Report 6287513-5 (Version None)
Quarter: 2009Q3

REPORT INFORMATION
  Report Type: 
  Country: None (occurrence: None)
  Receive Date: 20090727
  Receipt Date: 20090715
  Transmission Date: 20100115
  Serious: Yes (Death, Other)
  Sender: FDA-Public Use
  Company Number: 2008AL009653

PATIENT
  Age: 76 Year
  Sex: Male

DRUGS (36)
  1. DIGOXIN [Suspect]
     Dosage: 0.125MG, DAILY, PO
     Route: 048
     Dates: start: 20060701, end: 20070501
  2. ENALAPRIL MALEATE [Concomitant]
  3. ISOSORBIDE [Concomitant]
  4. LASIX [Concomitant]
  5. SPIRONOLACTONE [Concomitant]
  6. ASPIRIN [Concomitant]
  7. PROBENECID [Concomitant]
  8. METFORMIN [Concomitant]
  9. GLIPIZIDE [Concomitant]
  10. AVANDIA [Concomitant]
  11. ZOCOR [Concomitant]
  12. GLUCOTROL [Concomitant]
  13. K-DUR [Concomitant]
  14. KETOCONAZOLE [Concomitant]
  15. PROBENECID [Concomitant]
  16. STROVITE [Concomitant]
  17. ASCORBIC ACID [Concomitant]
  18. POTASSIUM CHLORIDE [Concomitant]
  19. METHYLPREDNISOL [Concomitant]
  20. WELLBUTRIN [Concomitant]
  21. DENAVIR [Concomitant]
  22. AMITIZA [Concomitant]
  23. VALTREX [Concomitant]
  24. HYDRALAZINE HCL [Concomitant]
  25. ALLOPURINOL [Concomitant]
  26. CONSTULOSE [Concomitant]
  27. CLOTRIMAZOLE [Concomitant]
  28. METOLAZONE [Concomitant]
  29. STROVITE FORTE [Concomitant]
  30. GLYCOLAX [Concomitant]
  31. ANDROGEL [Concomitant]
  32. AZITHROMYCIN [Concomitant]
  33. MIRTAZAPINE [Concomitant]
  34. NEOMYCIN [Concomitant]
  35. AVANDIA [Concomitant]
  36. KETOCONAZOLE [Concomitant]

REACTIONS (25)
  - ABDOMINAL DISCOMFORT [None]
  - ACTIVITIES OF DAILY LIVING IMPAIRED [None]
  - ANHEDONIA [None]
  - BACK PAIN [None]
  - CARDIAC FAILURE CONGESTIVE [None]
  - CARDIOMYOPATHY [None]
  - CHEST PAIN [None]
  - CONSTIPATION [None]
  - CORONARY ARTERY DISEASE [None]
  - DIALYSIS [None]
  - DIZZINESS [None]
  - DYSPEPSIA [None]
  - ECONOMIC PROBLEM [None]
  - EMOTIONAL DISORDER [None]
  - GAIT DISTURBANCE [None]
  - INJURY [None]
  - INTERVERTEBRAL DISC PROTRUSION [None]
  - MENTAL DISORDER [None]
  - PAIN [None]
  - PARKINSON'S DISEASE [None]
  - RENAL FAILURE ACUTE [None]
  - RESTLESS LEGS SYNDROME [None]
  - TREMOR [None]
  - UNEVALUABLE EVENT [None]
  - WEIGHT DECREASED [None]
